FAERS Safety Report 15453388 (Version 2)
Quarter: 2018Q4

REPORT INFORMATION
  Report Type: Spontaneous
  Country: DE (occurrence: DE)
  Receive Date: 20181001
  Receipt Date: 20181011
  Transmission Date: 20190204
  Serious: Yes (Other)
  Sender: FDA-Public Use
  Company Number: DE-PFIZER INC-2018388330

PATIENT
  Age: 64 Year
  Sex: Male

DRUGS (1)
  1. HALCION [Suspect]
     Active Substance: TRIAZOLAM
     Dosage: INTAKE FOR 44 YEARS

REACTIONS (6)
  - Headache [Unknown]
  - Dementia [Unknown]
  - Seizure [Unknown]
  - Delirium [Unknown]
  - Epilepsy [Unknown]
  - Withdrawal syndrome [Unknown]
